FAERS Safety Report 10539279 (Version 2)
Quarter: 2014Q4

REPORT INFORMATION
  Report Type: Spontaneous
  Country: AU (occurrence: AU)
  Receive Date: 20141023
  Receipt Date: 20141123
  Transmission Date: 20150529
  Serious: Yes (Other)
  Sender: FDA-Public Use
  Company Number: AU-MYLANLABS-2014M1007632

PATIENT

DRUGS (2)
  1. VINORELBINE AGILA, VINORELBINE AG [Suspect]
     Active Substance: VINORELBINE\VINORELBINE TARTRATE
     Indication: NEOPLASM MALIGNANT
     Dosage: UNK UNK, CYCLE
     Route: 065
  2. CISPLATIN. [Suspect]
     Active Substance: CISPLATIN
     Indication: NEOPLASM MALIGNANT
     Dosage: UNK UNK, CYCLE
     Route: 065

REACTIONS (2)
  - Disease progression [Unknown]
  - Neoplasm malignant [Unknown]
